FAERS Safety Report 12099620 (Version 1)
Quarter: 2016Q1

REPORT INFORMATION
  Report Type: Spontaneous
  Country: US (occurrence: US)
  Receive Date: 20160222
  Receipt Date: 20160222
  Transmission Date: 20160526
  Serious: Yes (Other)
  Sender: FDA-Public Use
  Company Number: US-WATSON-2016-03409

PATIENT
  Sex: Male

DRUGS (2)
  1. ANDRODERM [Suspect]
     Active Substance: TESTOSTERONE
     Indication: ANDROGEN REPLACEMENT THERAPY
     Dosage: UNKNOWN
     Route: 065
     Dates: start: 201109, end: 201403
  2. FORTESTA [Suspect]
     Active Substance: TESTOSTERONE
     Indication: ANDROGEN REPLACEMENT THERAPY
     Dosage: UNKNOWN
     Route: 065
     Dates: start: 201109, end: 201403

REACTIONS (3)
  - Cerebrovascular accident [Unknown]
  - Hemiparesis [Unknown]
  - Amnesia [Unknown]

NARRATIVE: CASE EVENT DATE: 201109
